FAERS Safety Report 23301944 (Version 2)
Quarter: 2024Q1

REPORT INFORMATION
  Report Type: Spontaneous
  Country: IN (occurrence: IN)
  Receive Date: 20231215
  Receipt Date: 20240115
  Transmission Date: 20240410
  Serious: Yes (Hospitalization, Other)
  Sender: FDA-Public Use
  Company Number: IN-MLMSERVICE-20231204-4701124-1

PATIENT

DRUGS (9)
  1. LIDOCAINE [Suspect]
     Active Substance: LIDOCAINE
     Indication: Epidural anaesthesia
     Dosage: 3 ML,3ML OF 2% LIGNOCAINE WITH ADRENALINE DRUG_START_PERIOD_NUMBER : 8 DRUG_START_PERIOD_UNIT : H
     Route: 065
  2. BUPRENORPHINE HYDROCHLORIDE [Suspect]
     Active Substance: BUPRENORPHINE HYDROCHLORIDE
     Indication: Epidural anaesthesia
     Dosage: 120 UG, EPIDURAL TOP UPS (POST-OPERATIVE)
     Route: 065
  3. BUPRENORPHINE HYDROCHLORIDE [Suspect]
     Active Substance: BUPRENORPHINE HYDROCHLORIDE
     Indication: Procedural pain
     Dosage: 60 UG
     Route: 037
  4. BUPIVACAINE [Suspect]
     Active Substance: BUPIVACAINE
     Indication: Epidural anaesthesia
     Dosage: 4 ML, 4 CC OF 0.25% BUPIVACAINE AFTER 3 HOURS OF STARTING THE PROCEDURE
     Route: 037
  5. BUPIVACAINE [Suspect]
     Active Substance: BUPIVACAINE
     Dosage: 3 ML,3CC OF 0.5% HYPERBARIC BUPIVACAINE
     Route: 037
  6. EPINEPHRINE [Suspect]
     Active Substance: EPINEPHRINE
     Indication: Epidural anaesthesia
     Dosage: 3 ML,3ML OF 2% LIGNOCAINE WITH ADRENALINE DRUG_START_PERIOD_NUMBER : 8 DRUG_START_PERIOD_UNIT : H
     Route: 065
  7. TRAMADOL HYDROCHLORIDE [Suspect]
     Active Substance: TRAMADOL HYDROCHLORIDE
     Indication: Procedural pain
     Dosage: 50 MG, Q8H
     Route: 065
  8. MIDAZOLAM [Concomitant]
     Active Substance: MIDAZOLAM
     Indication: Epidural anaesthesia
     Dosage: 1 MG
     Route: 042
  9. FENTANYL [Concomitant]
     Active Substance: FENTANYL\FENTANYL CITRATE
     Indication: Epidural anaesthesia
     Dosage: 30 UG
     Route: 042

REACTIONS (2)
  - Myoclonus [Recovered/Resolved]
  - Dyskinesia [Recovered/Resolved]
